FAERS Safety Report 17463843 (Version 1)
Quarter: 2020Q1

REPORT INFORMATION
  Report Type: Spontaneous
  Country: JP (occurrence: JP)
  Receive Date: 20200226
  Receipt Date: 20200226
  Transmission Date: 20200409
  Serious: Yes (Death)
  Sender: FDA-Public Use
  Company Number: JP-MALLINCKRODT-T202000851

PATIENT
  Sex: Male
  Weight: 1 kg

DRUGS (3)
  1. SILDENAFIL. [Concomitant]
     Active Substance: SILDENAFIL
     Indication: PRODUCT USED FOR UNKNOWN INDICATION
     Dosage: UNK
     Route: 065
  2. INOFLO [Suspect]
     Active Substance: NITRIC OXIDE
     Indication: CHRONIC RESPIRATORY DISEASE
     Dosage: UNK, PER INHALATION
     Route: 055
  3. INOFLO [Suspect]
     Active Substance: NITRIC OXIDE
     Dosage: 5 PPM, PER INHALATION
     Route: 055

REACTIONS (3)
  - Death [Fatal]
  - Therapy non-responder [Unknown]
  - Product use issue [Unknown]
